FAERS Safety Report 5132352-1 (Version None)
Quarter: 2006Q4

REPORT INFORMATION
  Report Type: 
  Country: None (occurrence: None)
  Receive Date: 20061023
  Receipt Date: 20061013
  Transmission Date: 20070319
  Serious: Yes (Other)
  Sender: FDA-Public Use
  Company Number: US-ABBOTT-06P-163-0346900-00

PATIENT
  Sex: Male
  Weight: 113 kg

DRUGS (2)
  1. HUMIRA [Suspect]
     Indication: DRUG USE FOR UNKNOWN INDICATION
     Route: 058
     Dates: start: 20050101
  2. LOTREL [Concomitant]
     Indication: BLOOD PRESSURE

REACTIONS (2)
  - RETINAL DETACHMENT [None]
  - VISUAL DISTURBANCE [None]
